FAERS Safety Report 7100936-7 (Version None)
Quarter: 2010Q4

REPORT INFORMATION
  Report Type: 
  Country: None (occurrence: None)
  Receive Date: 20101113
  Receipt Date: 20100420
  Transmission Date: 20110411
  Serious: No
  Sender: FDA-Public Use
  Company Number: US-ALLERGAN-0914665US

PATIENT
  Age: 53 Year
  Sex: Female
  Weight: 92.971 kg

DRUGS (2)
  1. BOTOX COSMETIC [Suspect]
     Indication: SKIN WRINKLING
     Dosage: 46 UNITS, SINGLE
     Route: 030
     Dates: start: 20090922, end: 20090922
  2. RADIASSE [Concomitant]

REACTIONS (11)
  - EYE DISCHARGE [None]
  - EYE PRURITUS [None]
  - EYE SWELLING [None]
  - EYELID PTOSIS [None]
  - H1N1 INFLUENZA [None]
  - HEADACHE [None]
  - IMMUNE SYSTEM DISORDER [None]
  - PNEUMONIA [None]
  - RASH GENERALISED [None]
  - RASH PRURITIC [None]
  - VISION BLURRED [None]
